FAERS Safety Report 9352429 (Version 3)
Quarter: 2013Q3

REPORT INFORMATION
  Report Type: Spontaneous
  Country: US (occurrence: US)
  Receive Date: 20130617
  Receipt Date: 20130715
  Transmission Date: 20140515
  Serious: Yes (Death)
  Sender: FDA-Public Use
  Company Number: US-GILEAD-2013-0077216

PATIENT
  Sex: Female

DRUGS (3)
  1. LETAIRIS [Suspect]
     Indication: PULMONARY ARTERIAL HYPERTENSION
     Dosage: 10 MG, QD
     Route: 048
     Dates: start: 201209, end: 201306
  2. COUMADIN                           /00014802/ [Concomitant]
  3. IPRATROPIUM BROMIDE [Concomitant]
     Dosage: UNK

REACTIONS (2)
  - Cardiac failure congestive [Fatal]
  - Renal failure [Fatal]
